FAERS Safety Report 15210008 (Version 1)
Quarter: 2018Q3

REPORT INFORMATION
  Report Type: Spontaneous
  Country: TW (occurrence: TW)
  Receive Date: 20180727
  Receipt Date: 20180727
  Transmission Date: 20181010
  Serious: Yes (Hospitalization)
  Sender: FDA-Public Use
  Company Number: TW-MYLANLABS-2018M1056092

PATIENT
  Age: 41 Year
  Sex: Male

DRUGS (2)
  1. MORPHINE [Suspect]
     Active Substance: MORPHINE
     Indication: PAIN
     Dosage: AVERAGE DAILY DOSE: 180 MG/DAY
     Route: 048
  2. PETHIDINE [Suspect]
     Active Substance: MEPERIDINE
     Indication: PAIN
     Dosage: AVERAGE DAILY DOSE: 300 MG/DAY
     Route: 048

REACTIONS (6)
  - Bone pain [Recovered/Resolved]
  - Restlessness [Recovered/Resolved]
  - Drug withdrawal syndrome [Recovered/Resolved]
  - Drug abuse [Recovered/Resolved]
  - Muscle spasms [Recovered/Resolved]
  - Drug dependence [Recovered/Resolved]
